FAERS Safety Report 6664283-X (Version None)
Quarter: 2010Q2

REPORT INFORMATION
  Report Type: 
  Country: None (occurrence: None)
  Receive Date: 20100401
  Receipt Date: 20100323
  Transmission Date: 20101027
  Serious: Yes (Hospitalization)
  Sender: FDA-Public Use
  Company Number: PHHY2010US18450

PATIENT
  Sex: Male
  Weight: 84 kg

DRUGS (1)
  1. EXJADE [Suspect]
     Indication: CONGENITAL APLASTIC ANAEMIA
     Dosage: 750 MG DAILY
     Route: 048
     Dates: start: 20080515

REACTIONS (1)
  - HERNIA [None]
